FAERS Safety Report 26080561 (Version 1)
Quarter: 2025Q4

REPORT INFORMATION
  Report Type: Spontaneous
  Country: KR (occurrence: KR)
  Receive Date: 20251124
  Receipt Date: 20251124
  Transmission Date: 20260118
  Serious: Yes (Death)
  Sender: BEIGENE
  Company Number: KR-BEIGENE-BGN-2025-020546

PATIENT

DRUGS (2)
  1. TEVIMBRA [Suspect]
     Active Substance: TISLELIZUMAB-JSGR
     Indication: Squamous cell carcinoma of lung
  2. TEVIMBRA [Suspect]
     Active Substance: TISLELIZUMAB-JSGR
     Indication: Metastases to skin

REACTIONS (2)
  - Death [Fatal]
  - Off label use [Unknown]
